FAERS Safety Report 8847367 (Version 2)
Quarter: 2012Q4

REPORT INFORMATION
  Report Type: Report from Study
  Country: BR (occurrence: BR)
  Receive Date: 20121018
  Receipt Date: 20121221
  Transmission Date: 20130627
  Serious: Yes (Hospitalization, Other)
  Sender: FDA-Public Use
  Company Number: BR-ABBOTT-12P-020-0994348-00

PATIENT
  Sex: Female
  Weight: 45 kg

DRUGS (5)
  1. HUMIRA [Suspect]
     Indication: RHEUMATOID ARTHRITIS
     Route: 058
     Dates: start: 2010
  2. HUMIRA [Suspect]
     Dates: start: 201110
  3. METICORTEN [Concomitant]
     Indication: ARTHRITIS
     Dosage: 5 mg x 1.5 tablets daily= 7.5 mg daily
     Route: 048
     Dates: start: 1992
  4. CALCIUM D [Concomitant]
     Indication: OSTEOPOROSIS
     Route: 048
  5. PARACETAMOL [Concomitant]
     Indication: HEADACHE
     Dosage: 1 tablet if needed
     Route: 048
     Dates: start: 2009

REACTIONS (3)
  - Haemorrhage [Recovered/Resolved]
  - Leiomyoma [Recovered/Resolved]
  - Pain [Recovered/Resolved]
